FAERS Safety Report 23203424 (Version 1)
Quarter: 2023Q4

REPORT INFORMATION
  Report Type: Spontaneous
  Country: US (occurrence: US)
  Receive Date: 20231120
  Receipt Date: 20231120
  Transmission Date: 20240109
  Serious: Yes (Other)
  Sender: FDA-Public Use
  Company Number: US-ALVOGEN-2023092349

PATIENT
  Sex: Male

DRUGS (1)
  1. CITALOPRAM [Suspect]
     Active Substance: CITALOPRAM HYDROBROMIDE
     Indication: Product used for unknown indication

REACTIONS (7)
  - Hallucination, visual [Unknown]
  - Idiopathic environmental intolerance [Not Recovered/Not Resolved]
  - Hyperreflexia [Unknown]
  - Injury [Not Recovered/Not Resolved]
  - Joint dislocation [Unknown]
  - Nausea [Unknown]
  - Dizziness [Unknown]
